FAERS Safety Report 8194496-X (Version None)
Quarter: 2012Q1

REPORT INFORMATION
  Report Type: 
  Country: None (occurrence: None)
  Receive Date: 20120308
  Receipt Date: 20110330
  Transmission Date: 20120608
  Serious: No
  Sender: FDA-Public Use
  Company Number: US-GLAXOSMITHKLINE-A0920656A

PATIENT
  Age: 46 Year
  Sex: Male

DRUGS (2)
  1. NICORETTE [Suspect]
     Indication: EX-TOBACCO USER
     Route: 002
     Dates: start: 20100901
  2. NICORETTE (MINT) [Suspect]
     Route: 002

REACTIONS (2)
  - NAUSEA [None]
  - DRUG ADMINISTRATION ERROR [None]
